FAERS Safety Report 9442370 (Version 1)
Quarter: 2013Q3

REPORT INFORMATION
  Report Type: Spontaneous
  Country: US (occurrence: US)
  Receive Date: 20130806
  Receipt Date: 20130806
  Transmission Date: 20140515
  Serious: No
  Sender: FDA-Public Use
  Company Number: US-GLAXOSMITHKLINE-A1013072A

PATIENT
  Age: 69 Year
  Sex: Female

DRUGS (8)
  1. ADVAIR [Suspect]
     Indication: ASTHMA
     Dosage: 1PUFF TWICE PER DAY
     Route: 055
     Dates: start: 20120820
  2. ATENOLOL [Concomitant]
  3. PREMARIN [Concomitant]
  4. LEVOTHYROXINE [Concomitant]
  5. SIMVASTATIN [Concomitant]
  6. NAPROSYN [Concomitant]
  7. HYDROCHLOROTHIAZIDE [Concomitant]
  8. FLONASE [Concomitant]

REACTIONS (3)
  - Urticaria [Not Recovered/Not Resolved]
  - Pruritus [Unknown]
  - Lip swelling [Unknown]
